FAERS Safety Report 5816396-X (Version None)
Quarter: 2008Q3

REPORT INFORMATION
  Report Type: 
  Country: None (occurrence: None)
  Receive Date: 20080721
  Receipt Date: 20071015
  Transmission Date: 20090109
  Serious: No
  Sender: FDA-Public Use
  Company Number: US-BAUSCH-2008BL001306

PATIENT
  Sex: Female

DRUGS (2)
  1. OPCON-A [Suspect]
     Indication: DRUG USE FOR UNKNOWN INDICATION
     Route: 047
  2. OPCON-A [Suspect]
     Route: 047

REACTIONS (1)
  - EYE IRRITATION [None]
